FAERS Safety Report 4633657-0 (Version None)
Quarter: 2005Q2

REPORT INFORMATION
  Report Type: 
  Country: None (occurrence: None)
  Receive Date: 20050325
  Receipt Date: 20050104
  Transmission Date: 20051028
  Serious: No
  Sender: FDA-Public Use
  Company Number: USA050187366

PATIENT
  Age: 83 Year
  Sex: Female

DRUGS (1)
  1. FORTEO [Suspect]
     Indication: ARTHRITIS
     Dosage: 20 UG
     Dates: start: 20040701

REACTIONS (2)
  - DYSPNOEA [None]
  - WALKING AID USER [None]
